FAERS Safety Report 11237665 (Version 2)
Quarter: 2015Q3

REPORT INFORMATION
  Report Type: Report from Study
  Country: CA (occurrence: CA)
  Receive Date: 20150703
  Receipt Date: 20150708
  Transmission Date: 20151125
  Serious: Yes (Death, Hospitalization)
  Sender: FDA-Public Use
  Company Number: CA-JNJFOC-20150619924

PATIENT
  Age: 75 Year
  Sex: Male

DRUGS (1)
  1. IMBRUVICA [Suspect]
     Active Substance: IBRUTINIB
     Indication: CHRONIC LYMPHOCYTIC LEUKAEMIA
     Route: 048
     Dates: start: 20150617, end: 20150620

REACTIONS (2)
  - Death [Fatal]
  - Balance disorder [Recovered/Resolved]

NARRATIVE: CASE EVENT DATE: 20150620
